FAERS Safety Report 21170770 (Version 2)
Quarter: 2022Q3

REPORT INFORMATION
  Report Type: Spontaneous
  Country: CA (occurrence: CA)
  Receive Date: 20220804
  Receipt Date: 20220817
  Transmission Date: 20221027
  Serious: Yes (Hospitalization, Other)
  Sender: FDA-Public Use
  Company Number: None

PATIENT
  Age: 79 Year
  Sex: Female

DRUGS (7)
  1. ESCITALOPRAM [Suspect]
     Active Substance: ESCITALOPRAM OXALATE
     Indication: Anxiety
     Route: 065
  2. SERTRALINE [Suspect]
     Active Substance: SERTRALINE HYDROCHLORIDE
     Indication: Anxiety
  3. CITALOPRAM [Suspect]
     Active Substance: CITALOPRAM HYDROBROMIDE
     Indication: Depression
     Dosage: 1 EVERY 1 DAYS
     Route: 065
  4. SERTRALINE [Suspect]
     Active Substance: SERTRALINE HYDROCHLORIDE
     Indication: Anxiety
  5. VENLAFAXINE [Suspect]
     Active Substance: VENLAFAXINE HYDROCHLORIDE
     Indication: Anxiety
  6. DIAZEPAM [Concomitant]
     Active Substance: DIAZEPAM
     Indication: Stiff person syndrome
     Dosage: 1 EVERY 1 DAYS
     Route: 065
  7. GABAPENTIN [Concomitant]
     Active Substance: GABAPENTIN
     Indication: Stiff person syndrome
     Dosage: 1 EVERY 1 DAYS
     Route: 065

REACTIONS (3)
  - Condition aggravated [Unknown]
  - Stiff person syndrome [Unknown]
  - Drug ineffective [Unknown]
